FAERS Safety Report 7210758-4 (Version None)
Quarter: 2011Q1

REPORT INFORMATION
  Report Type: 
  Country: None (occurrence: None)
  Receive Date: 20110105
  Receipt Date: 20101229
  Transmission Date: 20110831
  Serious: Yes (Death, Other)
  Sender: FDA-Public Use
  Company Number: KR-GENZYME-FLUD-1000586

PATIENT

DRUGS (8)
  1. ANTI-THYMOCYTE GLOBULIN NOS [Suspect]
     Indication: STEM CELL TRANSPLANT
     Dosage: 1.25 MG/KG, QD DAYS -2 TO -1
     Route: 042
  2. ITRACONAZOLE [Concomitant]
     Indication: PROPHYLAXIS
     Dosage: UNK
     Route: 065
  3. METHOTREXATE [Concomitant]
     Indication: PROPHYLAXIS AGAINST GRAFT VERSUS HOST DISEASE
     Dosage: 10 MG/M2, QD DAYS +1,+3,+6, +11
     Route: 042
  4. BUSULFAN [Suspect]
     Indication: STEM CELL TRANSPLANT
     Dosage: 3.2 MG/KG, QD DAYS -5 AND -4
     Route: 042
  5. COTRIM [Concomitant]
     Indication: PROPHYLAXIS
  6. METHOTREXATE [Concomitant]
     Dosage: 5 MG, QD
     Route: 065
  7. FLUDARA [Suspect]
     Indication: STEM CELL TRANSPLANT
     Dosage: 30 MG/M2, QD DAYS -6 TO -2
     Route: 042
  8. NEUPOGEN [Concomitant]
     Indication: PROPHYLAXIS AGAINST GRAFT VERSUS HOST DISEASE
     Dosage: 5 OTHER, QD STARTING DAY +7
     Route: 058

REACTIONS (6)
  - ACUTE GRAFT VERSUS HOST DISEASE [None]
  - PULMONARY HAEMORRHAGE [None]
  - DEATH [None]
  - SEPSIS [None]
  - LEUKAEMIA RECURRENT [None]
  - CHRONIC GRAFT VERSUS HOST DISEASE [None]
